FAERS Safety Report 23718377 (Version 2)
Quarter: 2024Q2

REPORT INFORMATION
  Report Type: Report from Study
  Country: FR (occurrence: FR)
  Receive Date: 20240408
  Receipt Date: 20240626
  Transmission Date: 20240716
  Serious: Yes (Other)
  Sender: FDA-Public Use
  Company Number: FR-GLAXOSMITHKLINE-FR2024GSK028185

PATIENT
  Sex: Female
  Weight: 60 kg

DRUGS (12)
  1. PACLITAXEL [Suspect]
     Active Substance: PACLITAXEL
     Indication: Endometrial cancer
     Dosage: UNK
     Dates: start: 20231219
  2. PACLITAXEL [Suspect]
     Active Substance: PACLITAXEL
     Indication: Cervix carcinoma
     Dosage: 6 MG/ML
     Dates: start: 20231222
  3. PACLITAXEL [Suspect]
     Active Substance: PACLITAXEL
     Dosage: 175 MG/M2
     Dates: start: 20240228
  4. CARBOPLATIN [Suspect]
     Active Substance: CARBOPLATIN
     Indication: Cervix carcinoma
     Dosage: UNK
     Dates: start: 20231219
  5. CARBOPLATIN [Suspect]
     Active Substance: CARBOPLATIN
     Indication: Endometrial cancer
     Dosage: UNK
     Dates: start: 20231222
  6. CARBOPLATIN [Suspect]
     Active Substance: CARBOPLATIN
     Dosage: 5 MG/ML/MIN
     Dates: start: 20240228
  7. DOSTARLIMAB [Suspect]
     Active Substance: DOSTARLIMAB
     Indication: Cervix carcinoma
     Dosage: 500 MG, EVERY 3 WEEKS
     Dates: start: 20231219
  8. DOSTARLIMAB [Suspect]
     Active Substance: DOSTARLIMAB
     Indication: Endometrial cancer recurrent
     Dosage: 500 MG, EVERY 3 WEEKS
     Dates: start: 20231222
  9. DOSTARLIMAB [Suspect]
     Active Substance: DOSTARLIMAB
     Dosage: 500 MG
     Dates: start: 20240228
  10. ZIEXTENZO [Suspect]
     Active Substance: PEGFILGRASTIM-BMEZ
     Indication: Blood disorder prophylaxis
     Dosage: 6 MG
     Dates: start: 20231224, end: 20231224
  11. PRISTINAMYCIN [Suspect]
     Active Substance: PRISTINAMYCIN
     Indication: Bronchitis
     Dosage: 500 MG, EVERY 8 HOURS
     Dates: start: 20231226, end: 20231230
  12. FEMARA [Concomitant]
     Active Substance: LETROZOLE
     Indication: Breast cancer
     Dosage: UNK

REACTIONS (1)
  - Hyperthyroidism [Unknown]
